FAERS Safety Report 4427465-3 (Version None)
Quarter: 2004Q3

REPORT INFORMATION
  Report Type: 
  Country: None (occurrence: None)
  Receive Date: 20040813
  Receipt Date: 20040729
  Transmission Date: 20050211
  Serious: Yes (Death)
  Sender: FDA-Public Use
  Company Number: MK200408-0107-1

PATIENT
  Age: 38 Year
  Sex: Female

DRUGS (4)
  1. OXYCODONE HCL [Suspect]
     Dates: start: 20010301
  2. CLONAZEPAM [Suspect]
     Dates: start: 20010301
  3. TRAZODONE [Concomitant]
  4. CANNABOIDS [Concomitant]

REACTIONS (3)
  - DRUG ABUSER [None]
  - OVERDOSE [None]
  - TREATMENT NONCOMPLIANCE [None]
